FAERS Safety Report 14091876 (Version 2)
Quarter: 2017Q4

REPORT INFORMATION
  Report Type: Report from Study
  Country: US (occurrence: US)
  Receive Date: 20171016
  Receipt Date: 20171024
  Transmission Date: 20180321
  Serious: Yes (Other)
  Sender: FDA-Public Use
  Company Number: US-ROCHE-2008683

PATIENT
  Sex: Female

DRUGS (5)
  1. CELLCEPT [Suspect]
     Active Substance: MYCOPHENOLATE MOFETIL\MYCOPHENOLATE MOFETIL HYDROCHLORIDE
     Indication: OPTIC NEURITIS
     Dosage: ONGOING: NO
     Route: 065
  2. CELLCEPT [Suspect]
     Active Substance: MYCOPHENOLATE MOFETIL\MYCOPHENOLATE MOFETIL HYDROCHLORIDE
     Dosage: ONGOING: UNKNOWN
     Route: 065
  3. CELLCEPT [Suspect]
     Active Substance: MYCOPHENOLATE MOFETIL\MYCOPHENOLATE MOFETIL HYDROCHLORIDE
     Indication: SYSTEMIC LUPUS ERYTHEMATOSUS
     Dosage: ONGOING: NO
     Route: 065
  4. RITUXAN [Suspect]
     Active Substance: RITUXIMAB
     Indication: PRODUCT USED FOR UNKNOWN INDICATION
     Route: 042
     Dates: start: 2007
  5. RITUXAN [Suspect]
     Active Substance: RITUXIMAB
     Route: 042

REACTIONS (6)
  - Off label use [Unknown]
  - Optic neuritis [Not Recovered/Not Resolved]
  - Intentional product use issue [Unknown]
  - Blindness [Not Recovered/Not Resolved]
  - Eye disorder [Unknown]
  - Optic atrophy [Not Recovered/Not Resolved]
